FAERS Safety Report 7248301-6 (Version None)
Quarter: 2011Q1

REPORT INFORMATION
  Report Type: 
  Country: None (occurrence: None)
  Receive Date: 20110127
  Receipt Date: 20110118
  Transmission Date: 20110831
  Serious: Yes (Other)
  Sender: FDA-Public Use
  Company Number: CA-SANOFI-AVENTIS-2011SA003557

PATIENT
  Sex: Male

DRUGS (4)
  1. ASACOL [Concomitant]
     Indication: IRRITABLE BOWEL SYNDROME
  2. AMARYL [Concomitant]
     Indication: TYPE 2 DIABETES MELLITUS
  3. LANTUS [Suspect]
     Indication: TYPE 2 DIABETES MELLITUS
     Dosage: 4-6 WEEKS AGO
     Route: 058
     Dates: start: 20101101
  4. METFORMIN [Concomitant]
     Indication: TYPE 2 DIABETES MELLITUS

REACTIONS (1)
  - PANCREATIC ENZYMES INCREASED [None]
